FAERS Safety Report 5310409-X (Version None)
Quarter: 2007Q2

REPORT INFORMATION
  Report Type: 
  Country: None (occurrence: None)
  Receive Date: 20070427
  Receipt Date: 20070418
  Transmission Date: 20071010
  Serious: Yes (Other)
  Sender: FDA-Public Use
  Company Number: US-JNJFOC-20070305388

PATIENT
  Sex: Male
  Weight: 87.54 kg

DRUGS (6)
  1. REMICADE [Suspect]
     Route: 042
  2. REMICADE [Suspect]
     Indication: CROHN'S DISEASE
     Route: 042
  3. 6-MP [Concomitant]
  4. PREDNISONE TAB [Concomitant]
  5. TYLENOL [Concomitant]
     Indication: PREMEDICATION
     Route: 048
  6. BENADRYL [Concomitant]
     Indication: PREMEDICATION
     Route: 048

REACTIONS (8)
  - BLOOD PRESSURE DECREASED [None]
  - DIZZINESS [None]
  - DYSPNOEA [None]
  - FLUSHING [None]
  - HYPERHIDROSIS [None]
  - HYPOAESTHESIA [None]
  - INFUSION RELATED REACTION [None]
  - RASH [None]
